FAERS Safety Report 25725680 (Version 1)
Quarter: 2025Q3

REPORT INFORMATION
  Report Type: Report from Study
  Country: US (occurrence: US)
  Receive Date: 20250826
  Receipt Date: 20250826
  Transmission Date: 20251021
  Serious: Yes (Hospitalization)
  Sender: ALEXION PHARMACEUTICALS
  Company Number: 202501USA008764US

PATIENT
  Age: 74 Year
  Sex: Female

DRUGS (1)
  1. STRENSIQ [Suspect]
     Active Substance: ASFOTASE ALFA
     Indication: Osteoporosis
     Dosage: 120 MILLIGRAM, TIW
     Route: 065

REACTIONS (1)
  - Ulcer [Recovering/Resolving]
